FAERS Safety Report 9253453 (Version 2)
Quarter: 2013Q2

REPORT INFORMATION
  Report Type: Spontaneous
  Country: JP (occurrence: JP)
  Receive Date: 20130425
  Receipt Date: 20130520
  Transmission Date: 20140414
  Serious: Yes (Other)
  Sender: FDA-Public Use
  Company Number: JP-AMGEN-JPNSP2013028373

PATIENT
  Age: 60 Year
  Sex: Male

DRUGS (6)
  1. GRAN [Suspect]
     Indication: LYMPHOMA
     Dosage: UNK
     Route: 065
  2. ADRIACIN [Suspect]
     Indication: LYMPHOMA
     Dosage: UNK
     Route: 065
  3. PREDNISOLONE [Suspect]
     Indication: LYMPHOMA
     Dosage: UNK
     Route: 048
  4. RITUXIMAB [Concomitant]
     Indication: LYMPHOMA
     Dosage: UNK
     Route: 065
  5. CYCLOPHOSPHAMIDE [Concomitant]
     Indication: LYMPHOMA
     Dosage: UNK
     Route: 065
  6. VINCRISTINE SULFATE [Concomitant]
     Indication: LYMPHOMA
     Dosage: UNK
     Route: 065

REACTIONS (1)
  - Osteonecrosis [Unknown]
